FAERS Safety Report 4429423-1 (Version None)
Quarter: 2004Q3

REPORT INFORMATION
  Report Type: 
  Country: None (occurrence: None)
  Receive Date: 20040816
  Receipt Date: 20040802
  Transmission Date: 20050211
  Serious: Yes (Other)
  Sender: FDA-Public Use
  Company Number: 2004052041

PATIENT
  Age: 46 Year
  Sex: Male

DRUGS (12)
  1. NIFEDIPINE [Suspect]
     Indication: HYPERTENSION
     Dosage: ORAL
     Route: 048
  2. ATENOLOL [Suspect]
     Indication: MIGRAINE
  3. ATORVASTATIN [Suspect]
     Indication: ILL-DEFINED DISORDER
  4. CHLORTALIDONE [Suspect]
     Indication: MIGRAINE
  5. MIRTAZAPINE [Suspect]
     Indication: ILL-DEFINED DISORDER
  6. SIMVASTATIN [Concomitant]
  7. METFORMIN HCL [Concomitant]
  8. IRBESARTAN [Concomitant]
  9. BISOPROLOL FUMARATE [Concomitant]
  10. FUROSEMIDE [Concomitant]
  11. CLOMIPRAMINE HCL [Concomitant]
  12. ENDOCRINE JOURNAL [Concomitant]

REACTIONS (6)
  - BLOOD TRIGLYCERIDES INCREASED [None]
  - DIABETES MELLITUS INADEQUATE CONTROL [None]
  - DRUG INTERACTION [None]
  - HEADACHE [None]
  - METABOLIC SYNDROME [None]
  - RETINOPATHY HYPERTENSIVE [None]
